FAERS Safety Report 6143147-4 (Version None)
Quarter: 2009Q2

REPORT INFORMATION
  Report Type: 
  Country: None (occurrence: None)
  Receive Date: 20090403
  Receipt Date: 20090330
  Transmission Date: 20091009
  Serious: Yes (Death)
  Sender: FDA-Public Use
  Company Number: US-ABBOTT-09P-163-0565244-00

PATIENT
  Sex: Female
  Weight: 71.278 kg

DRUGS (14)
  1. ZEMPLAR [Suspect]
     Indication: HYPERPARATHYROIDISM
     Dates: start: 20061206
  2. LEVIMIR INSULIN [Concomitant]
     Indication: TYPE 1 DIABETES MELLITUS
     Route: 058
  3. HUMALOG [Concomitant]
     Indication: TYPE 1 DIABETES MELLITUS
     Dosage: BEFORE MEALS/ SLIDING SCALE
     Route: 058
  4. SYNTHROID [Concomitant]
     Indication: THYROID DISORDER
     Route: 048
  5. ENULOSE [Concomitant]
     Indication: PROPHYLAXIS AGAINST TRANSPLANT REJECTION
     Route: 048
  6. PROGRAF [Concomitant]
     Indication: PROPHYLAXIS AGAINST TRANSPLANT REJECTION
     Route: 048
  7. TOPROL-XL [Concomitant]
     Indication: HYPERTENSION
     Route: 048
  8. BACTRIM [Concomitant]
     Indication: PROPHYLAXIS AGAINST TRANSPLANT REJECTION
     Route: 048
  9. LASIX [Concomitant]
     Indication: FLUID RETENTION
     Route: 048
  10. ZANTAC [Concomitant]
     Indication: GASTROOESOPHAGEAL REFLUX DISEASE
     Route: 048
  11. KLONOPIN [Concomitant]
     Indication: ANXIETY
     Route: 048
  12. SEROQUEL [Concomitant]
     Indication: DRUG USE FOR UNKNOWN INDICATION
     Route: 048
  13. ZOLOFT [Concomitant]
     Indication: DEPRESSION
     Route: 048
  14. PREDNISOLONE [Concomitant]
     Indication: DRUG USE FOR UNKNOWN INDICATION
     Dosage: ONE DROP IN EACH EYE DAILY
     Route: 047

REACTIONS (2)
  - COMPLICATIONS OF TRANSPLANTED LIVER [None]
  - HEPATIC FAILURE [None]
